FAERS Safety Report 12959365 (Version 2)
Quarter: 2016Q4

REPORT INFORMATION
  Report Type: Spontaneous
  Country: HU (occurrence: HU)
  Receive Date: 20161121
  Receipt Date: 20161219
  Transmission Date: 20170207
  Serious: Yes (Hospitalization)
  Sender: FDA-Public Use
  Company Number: PHHY2016HU156430

PATIENT
  Age: 76 Year
  Sex: Male

DRUGS (4)
  1. CORTEF [Concomitant]
     Active Substance: HYDROCORTISONE
     Dosage: UNK (6 IN THE MORNING, 3 AT NOON FROM THE 4TH DAY DAILY DOSE SHOULD BE DECREASED WITH 5 MG UNTIL)
     Route: 065
     Dates: start: 20160919, end: 20161028
  2. CORTEF [Concomitant]
     Active Substance: HYDROCORTISONE
     Dosage: UNK
     Route: 065
  3. VOTRIENT [Suspect]
     Active Substance: PAZOPANIB HYDROCHLORIDE
     Indication: METASTATIC RENAL CELL CARCINOMA
     Dosage: 800 MG, QD
     Route: 048
     Dates: start: 20160919, end: 20161029
  4. CORTEF [Concomitant]
     Active Substance: HYDROCORTISONE
     Indication: PRODUCT USED FOR UNKNOWN INDICATION
     Dosage: UNK
     Route: 065
     Dates: end: 20160919

REACTIONS (12)
  - Dyspnoea [Unknown]
  - Alanine aminotransferase increased [Not Recovered/Not Resolved]
  - General physical health deterioration [Unknown]
  - Rhinorrhoea [Unknown]
  - Blood bilirubin increased [Unknown]
  - Gamma-glutamyltransferase increased [Not Recovered/Not Resolved]
  - Insomnia [Unknown]
  - Diarrhoea [Unknown]
  - Hepatic enzyme increased [Not Recovered/Not Resolved]
  - Asthenia [Unknown]
  - Hypertension [Unknown]
  - Aspartate aminotransferase increased [Not Recovered/Not Resolved]

NARRATIVE: CASE EVENT DATE: 2016
